FAERS Safety Report 9753888 (Version 1)
Quarter: 2013Q4

REPORT INFORMATION
  Report Type: Spontaneous
  Country: US (occurrence: US)
  Receive Date: 20131213
  Receipt Date: 20131213
  Transmission Date: 20140711
  Serious: No
  Sender: FDA-Public Use
  Company Number: US-GILEAD-2010-0027736

PATIENT
  Sex: Female
  Weight: 68.49 kg

DRUGS (23)
  1. LETAIRIS [Suspect]
     Indication: PULMONARY ARTERIAL HYPERTENSION
     Route: 048
     Dates: start: 20100309
  2. FLOLAN [Concomitant]
  3. LASIX [Concomitant]
  4. SPIRONOLACTONE [Concomitant]
  5. ZOCOR [Concomitant]
  6. METHOTREXATE [Concomitant]
  7. PLAVIX [Concomitant]
  8. SYNTHROID [Concomitant]
  9. LYRICA [Concomitant]
  10. AMBIEN [Concomitant]
  11. ZOFRAN [Concomitant]
  12. ZYRTEC [Concomitant]
  13. OMEPRAZOLE [Concomitant]
  14. TYLENOL [Concomitant]
  15. IMODIUM [Concomitant]
  16. IRON [Concomitant]
  17. ASPIRIN [Concomitant]
  18. FOLIC ACID [Concomitant]
  19. MULTIVITAMIN [Concomitant]
  20. OXYGEN [Concomitant]
  21. METAMUCIL POWDER [Concomitant]
  22. FISH OIL [Concomitant]
  23. SODIUM CHLORIDE [Concomitant]

REACTIONS (4)
  - Oedema [Unknown]
  - Feeling cold [Unknown]
  - Headache [Unknown]
  - Dyspnoea [Unknown]
